FAERS Safety Report 21762577 (Version 1)
Quarter: 2022Q4

REPORT INFORMATION
  Report Type: Spontaneous
  Country: US (occurrence: None)
  Receive Date: 20221221
  Receipt Date: 20221221
  Transmission Date: 20230113
  Serious: Yes (unspecified)
  Sender: FDA-Public Use
  Company Number: None

PATIENT
  Age: 32 Year
  Sex: Female

DRUGS (1)
  1. VASELINE INTENSIVE CARE DEEP MOISTURE [Suspect]
     Active Substance: PETROLATUM
     Indication: Dry skin
     Dosage: FREQUENCY : AS NEEDED;?
     Route: 061
     Dates: start: 20221211, end: 20221211

REACTIONS (3)
  - Application site pain [None]
  - Application site pruritus [None]
  - Acne [None]

NARRATIVE: CASE EVENT DATE: 20221211
